FAERS Safety Report 4399419-7 (Version None)
Quarter: 2004Q3

REPORT INFORMATION
  Report Type: 
  Country: None (occurrence: None)
  Receive Date: 20040712
  Receipt Date: 20040707
  Transmission Date: 20050211
  Serious: Yes (Death)
  Sender: FDA-Public Use
  Company Number: 04-07-0962

PATIENT
  Age: 54 Year
  Sex: Male

DRUGS (1)
  1. CLOZAPINE [Suspect]
     Indication: SCHIZOPHRENIA
     Dosage: 100-600 MG QD ORAL
     Route: 048
     Dates: start: 19991201, end: 20040401

REACTIONS (3)
  - MYOCARDIAL INFARCTION [None]
  - OVERWEIGHT [None]
  - SMOKER [None]
